FAERS Safety Report 8475002-9 (Version None)
Quarter: 2012Q2

REPORT INFORMATION
  Report Type: 
  Country: None (occurrence: None)
  Receive Date: 20120628
  Receipt Date: 20120619
  Transmission Date: 20120825
  Serious: Yes (Other)
  Sender: FDA-Public Use
  Company Number: US-BAYER-2012-061920

PATIENT
  Age: 21 Year
  Sex: Female
  Weight: 55 kg

DRUGS (4)
  1. MALARONE [Concomitant]
     Indication: MALARIA
     Dosage: UNK
     Dates: start: 20060116
  2. MALARONE [Concomitant]
     Dosage: 250/100MG
  3. YASMIN [Suspect]
     Indication: MENORRHAGIA
     Dosage: UNK
  4. CIPROFLOXACIN [Concomitant]
     Dosage: 500 MG, UNK

REACTIONS (1)
  - DEEP VEIN THROMBOSIS [None]
